FAERS Safety Report 6697552-8 (Version None)
Quarter: 2010Q2

REPORT INFORMATION
  Report Type: 
  Country: None (occurrence: None)
  Receive Date: 20100426
  Receipt Date: 20100210
  Transmission Date: 20101027
  Serious: No
  Sender: FDA-Public Use
  Company Number: US-ABBOTT-10P-163-0626270-00

PATIENT
  Sex: Female
  Weight: 58.112 kg

DRUGS (5)
  1. AZMACORT [Suspect]
     Indication: ASTHMA
     Dates: end: 20100101
  2. SINGULAIR [Concomitant]
     Indication: ASTHMA
     Dates: start: 20000101
  3. MAXAIR [Concomitant]
     Indication: ASTHMA
  4. FLOVENT [Concomitant]
     Indication: ASTHMA
     Dates: start: 20100101
  5. ADVAIR DISKUS 100/50 [Concomitant]
     Indication: ASTHMA
     Dates: start: 20100201

REACTIONS (2)
  - BRONCHOSPASM [None]
  - DYSPNOEA [None]
